FAERS Safety Report 9772293 (Version 2)
Quarter: 2014Q1

REPORT INFORMATION
  Report Type: Report from Study
  Country: DE (occurrence: DE)
  Receive Date: 20131219
  Receipt Date: 20140117
  Transmission Date: 20141002
  Serious: Yes (Other)
  Sender: FDA-Public Use
  Company Number: DE-ASTELLAS-2013US013045

PATIENT
  Age: 74 Year
  Sex: Male

DRUGS (7)
  1. ERLOTINIB TABLET [Suspect]
     Indication: PANCREATIC CARCINOMA
     Dosage: UNK
     Route: 065
  2. ERLOTINIB TABLET [Suspect]
     Dosage: UNK
     Route: 065
  3. GEMCITABINE /01215702/ [Suspect]
     Indication: PANCREATIC CARCINOMA
     Dosage: 2010 MG, UID/QD
     Route: 065
     Dates: start: 20130711
  4. GEMCITABINE /01215702/ [Suspect]
     Dosage: UNK
     Route: 065
  5. AMLODIPINE [Concomitant]
     Indication: HYPERTENSION
     Dosage: 10 MG, UID/QD
     Route: 065
  6. VALSARTAN [Concomitant]
     Indication: HYPERTENSION
     Dosage: 160 MG, UID/QD
     Route: 065
  7. SIMVASTATIN [Concomitant]
     Indication: HYPERCHOLESTEROLAEMIA
     Dosage: 40 MG, UID/QD
     Route: 065

REACTIONS (1)
  - Fistula [Recovered/Resolved]
